FAERS Safety Report 10866417 (Version 1)
Quarter: 2015Q1

REPORT INFORMATION
  Report Type: Spontaneous
  Country: US (occurrence: US)
  Receive Date: 20150225
  Receipt Date: 20150225
  Transmission Date: 20150721
  Serious: Yes (Life-Threatening, Hospitalization)
  Sender: FDA-Public Use
  Company Number: US-AMGEN-USASP2015016628

PATIENT
  Sex: Female
  Weight: 58 kg

DRUGS (1)
  1. ENBREL [Suspect]
     Active Substance: ETANERCEPT
     Indication: PSORIASIS
     Dosage: 25 MG,(EVERY SIX WEEKS)
     Route: 065

REACTIONS (2)
  - Appendicitis [Recovering/Resolving]
  - Adverse event [Unknown]
